FAERS Safety Report 8385607 (Version 4)
Quarter: 2013Q2

REPORT INFORMATION
  Report Type: Spontaneous
  Country: US (occurrence: US)
  Receive Date: 20120202
  Receipt Date: 20130522
  Transmission Date: 20140414
  Serious: Yes (Other)
  Sender: FDA-Public Use
  Company Number: US-ACTELION-A-US2012-60307

PATIENT
  Age: 44 Year
  Sex: Female

DRUGS (6)
  1. TRACLEER [Suspect]
     Indication: PULMONARY ARTERIAL HYPERTENSION
     Dosage: UNK
     Route: 048
  2. VENTAVIS [Suspect]
     Indication: PULMONARY ARTERIAL HYPERTENSION
     Dosage: UNK ?G, UNK
     Route: 055
     Dates: start: 20120116, end: 20120120
  3. SILDENAFIL [Suspect]
     Indication: PULMONARY ARTERIAL HYPERTENSION
  4. DIGOXIN [Concomitant]
  5. OXYGEN [Concomitant]
  6. ASPIRIN [Concomitant]

REACTIONS (6)
  - Nasal congestion [Recovered/Resolved]
  - Dyspnoea [Not Recovered/Not Resolved]
  - Increased upper airway secretion [Unknown]
  - Dizziness [Unknown]
  - Headache [Unknown]
  - Nasopharyngitis [Unknown]
